FAERS Safety Report 9030260 (Version 2)
Quarter: 2013Q1

REPORT INFORMATION
  Report Type: Report from Study
  Country: PR (occurrence: PR)
  Receive Date: 20130122
  Receipt Date: 20130128
  Transmission Date: 20140127
  Serious: Yes (Hospitalization)
  Sender: FDA-Public Use
  Company Number: PR-BAYER-2013-008014

PATIENT
  Age: 54 Year
  Sex: Female

DRUGS (4)
  1. BETASERON [Suspect]
     Indication: MULTIPLE SCLEROSIS
     Dosage: UNK
     Dates: start: 20080116, end: 20080413
  2. BETASERON [Suspect]
     Indication: MULTIPLE SCLEROSIS
     Dosage: UNK
     Dates: start: 20080616, end: 20100501
  3. BETASERON [Suspect]
     Indication: MULTIPLE SCLEROSIS
     Dosage: UNK
     Dates: start: 20110420, end: 20110925
  4. BETASERON [Suspect]
     Indication: MULTIPLE SCLEROSIS
     Dosage: 8 MIU, UNK
     Route: 058
     Dates: start: 20111101

REACTIONS (2)
  - Nephrolithiasis [Not Recovered/Not Resolved]
  - Back pain [Not Recovered/Not Resolved]
